FAERS Safety Report 21689717 (Version 3)
Quarter: 2024Q1

REPORT INFORMATION
  Report Type: Report from Study
  Country: US (occurrence: US)
  Receive Date: 20221206
  Receipt Date: 20240111
  Transmission Date: 20240410
  Serious: Yes (Other)
  Sender: FDA-Public Use
  Company Number: US-ABBVIE-4188973

PATIENT
  Sex: Female

DRUGS (6)
  1. HUMIRA [Suspect]
     Active Substance: ADALIMUMAB
     Indication: Hidradenitis
     Dosage: CITRATE FREE?FORM STRENGTH: 40 MG
     Route: 058
  2. HUMIRA [Suspect]
     Active Substance: ADALIMUMAB
     Dosage: CITRATE FREE?FORM STRENGTH: 40 MG
     Route: 058
  3. HUMIRA [Suspect]
     Active Substance: ADALIMUMAB
     Dosage: CITRATE FREE?FORM STRENGTH: 40 MG
     Route: 058
  4. HUMIRA [Suspect]
     Active Substance: ADALIMUMAB
     Dosage: CITRATE FREE?FORM STRENGTH: 40 MG
     Route: 058
  5. DOXYCYCLINE [Suspect]
     Active Substance: DOXYCYCLINE
     Indication: Product used for unknown indication
     Route: 065
  6. OZEMPIC [Suspect]
     Active Substance: SEMAGLUTIDE
     Indication: Product used for unknown indication
     Route: 065

REACTIONS (16)
  - Liver disorder [Not Recovered/Not Resolved]
  - Fungal infection [Recovering/Resolving]
  - Discomfort [Recovering/Resolving]
  - Hidradenitis [Recovered/Resolved]
  - Hidradenitis [Recovered/Resolved]
  - COVID-19 [Recovered/Resolved]
  - Hidradenitis [Unknown]
  - Hidradenitis [Recovered/Resolved]
  - Hidradenitis [Recovered/Resolved]
  - Unevaluable event [Not Recovered/Not Resolved]
  - COVID-19 [Recovered/Resolved]
  - Hidradenitis [Recovered/Resolved]
  - Lower limb fracture [Unknown]
  - Hidradenitis [Recovered/Resolved]
  - Hidradenitis [Recovering/Resolving]
  - Hidradenitis [Recovered/Resolved]

NARRATIVE: CASE EVENT DATE: 20220101
